FAERS Safety Report 6962244-4 (Version None)
Quarter: 2010Q3

REPORT INFORMATION
  Report Type: 
  Country: None (occurrence: None)
  Receive Date: 20100830
  Receipt Date: 20080221
  Transmission Date: 20110219
  Serious: Yes (Life-Threatening, Other)
  Sender: FDA-Public Use
  Company Number: UK-2008-00090

PATIENT
  Age: 48 Year
  Sex: Female
  Weight: 60 kg

DRUGS (7)
  1. LISINOPRIL [Suspect]
     Indication: HYPERTENSION
     Dosage: 10 MG (1 IN 1 D),ORAL
     Route: 048
     Dates: start: 20070801, end: 20080124
  2. FLUOXETINE (UNKNOWN) [Concomitant]
  3. GLYCOPYRRONIUM BROMIDE (GLYCOPYRROLATE) (UNKNOWN) [Concomitant]
  4. NEOSTIGMINE (UNKNOWN) [Concomitant]
  5. PARACETAMOL (UNKNOWN) [Concomitant]
  6. PROPOFOL (UNKNOWN) [Concomitant]
  7. ROCURONIUM (UNKNOWN) [Concomitant]

REACTIONS (6)
  - DYSPHAGIA [None]
  - DYSPNOEA [None]
  - FLUSHING [None]
  - POST PROCEDURAL COMPLICATION [None]
  - SWOLLEN TONGUE [None]
  - UPPER AIRWAY OBSTRUCTION [None]
